FAERS Safety Report 6193654-3 (Version None)
Quarter: 2009Q2

REPORT INFORMATION
  Report Type: 
  Country: None (occurrence: None)
  Receive Date: 20090518
  Receipt Date: 20090505
  Transmission Date: 20091009
  Serious: Yes (Hospitalization)
  Sender: FDA-Public Use
  Company Number: US-ELI_LILLY_AND_COMPANY-US200905000983

PATIENT
  Sex: Female

DRUGS (7)
  1. CYMBALTA [Suspect]
     Indication: NEURALGIA
     Dosage: 60 MG, DAILY (1/D)
     Route: 048
  2. INTERFERON BETA-1A [Concomitant]
     Indication: MULTIPLE SCLEROSIS
     Dosage: 8.8 UG, 3/W
     Route: 058
     Dates: start: 20080815, end: 20080818
  3. INTERFERON BETA-1A [Concomitant]
     Dosage: 1 D/F, UNK
     Dates: start: 20080906
  4. ZANAFLEX [Concomitant]
     Indication: MUSCLE SPASTICITY
     Dosage: 2 MG, 2/D
     Route: 048
  5. SOLU-MEDROL [Concomitant]
     Indication: MULTIPLE SCLEROSIS
     Dosage: UNK, UNK
     Route: 042
     Dates: start: 20080801, end: 20080801
  6. PREDNISONE [Concomitant]
     Indication: MULTIPLE SCLEROSIS
     Dosage: 60 MG, DAILY (1/D)
     Route: 048
     Dates: start: 20080801
  7. MECLIZINE [Concomitant]
     Dosage: 25 MG, UNK

REACTIONS (8)
  - ADRENAL INSUFFICIENCY [None]
  - ASTHENIA [None]
  - BLOOD POTASSIUM DECREASED [None]
  - DISORIENTATION [None]
  - MALAISE [None]
  - MULTIPLE SCLEROSIS [None]
  - ORTHOSTATIC HYPOTENSION [None]
  - TREMOR [None]
